FAERS Safety Report 5974195-2 (Version None)
Quarter: 2008Q4

REPORT INFORMATION
  Report Type: 
  Country: None (occurrence: None)
  Receive Date: 20081201
  Receipt Date: 20081125
  Transmission Date: 20090506
  Serious: Yes (Other)
  Sender: FDA-Public Use
  Company Number: US-PFIZER INC-2008052028

PATIENT
  Sex: Female
  Weight: 59 kg

DRUGS (9)
  1. CHANTIX [Suspect]
     Indication: SMOKING CESSATION THERAPY
     Dates: start: 20080609
  2. EFFEXOR [Concomitant]
  3. METHADONE HCL [Concomitant]
     Indication: PAIN
  4. PULMICORT-100 [Concomitant]
     Indication: ASTHMA
  5. COMBIVENT [Concomitant]
  6. NEURONTIN [Concomitant]
  7. XANAX [Concomitant]
  8. ALBUTEROL [Concomitant]
  9. OPIOIDS [Concomitant]
     Indication: PAIN

REACTIONS (5)
  - EYE PAIN [None]
  - INSOMNIA [None]
  - MENTAL DISORDER [None]
  - SUICIDAL IDEATION [None]
  - VISION BLURRED [None]
